FAERS Safety Report 6163037-0 (Version None)
Quarter: 2009Q2

REPORT INFORMATION
  Report Type: 
  Country: None (occurrence: None)
  Receive Date: 20090421
  Receipt Date: 20090414
  Transmission Date: 20091009
  Serious: Yes (Other)
  Sender: FDA-Public Use
  Company Number: GB-JNJCH-2009006965

PATIENT
  Sex: Female

DRUGS (2)
  1. NICORETTE INVISI 25MG [Suspect]
     Indication: SMOKING CESSATION THERAPY
     Dosage: TEXT:25 MG OVER 16 HOURS
     Route: 062
  2. NICORETTE [Suspect]
     Indication: SMOKING CESSATION THERAPY
     Dosage: TEXT:UNSPECIFIED
     Route: 055

REACTIONS (3)
  - CONDITION AGGRAVATED [None]
  - EYE INFECTION [None]
  - EYE SWELLING [None]
